FAERS Safety Report 5049885-9 (Version None)
Quarter: 2006Q3

REPORT INFORMATION
  Report Type: 
  Country: None (occurrence: None)
  Receive Date: 20060706
  Receipt Date: 20060621
  Transmission Date: 20061208
  Serious: Yes (Hospitalization)
  Sender: FDA-Public Use
  Company Number: 226815

PATIENT
  Age: 81 Year
  Sex: Male

DRUGS (3)
  1. AVASTIN [Suspect]
     Indication: COLORECTAL CANCER METASTATIC
     Dosage: 325 MG, Q2W, INTRAVENOUS
     Route: 042
     Dates: start: 20060524, end: 20060524
  2. OXALIPLATIN (OXALIPLATIN) [Suspect]
     Indication: COLORECTAL CANCER METASTATIC
     Dosage: 145 MG, Q2W; INTRAVENOUS
     Route: 042
     Dates: start: 20060524, end: 20060524
  3. CAPECITABINE (CAPECITABINE) [Suspect]
     Indication: COLORECTAL CANCER METASTATIC
     Dosage: 5000 MG, QD; ORAL
     Route: 048
     Dates: start: 20060524, end: 20060531

REACTIONS (6)
  - ASTHENIA [None]
  - DECREASED APPETITE [None]
  - DIARRHOEA [None]
  - HYPOTENSION [None]
  - STOMATITIS [None]
  - WEIGHT DECREASED [None]
